FAERS Safety Report 17731560 (Version 3)
Quarter: 2020Q3

REPORT INFORMATION
  Report Type: Other
  Country: US (occurrence: US)
  Receive Date: 20200430
  Receipt Date: 20200722
  Transmission Date: 20201102
  Serious: Yes (Hospitalization, Other)
  Sender: FDA-Public Use
  Company Number: US-AMAG PHARMACEUTICALS, INC.-AMAG202001474

PATIENT
  Age: 33 Year
  Sex: Female

DRUGS (4)
  1. MAKENA [Suspect]
     Active Substance: HYDROXYPROGESTERONE CAPROATE
     Indication: PREMATURE DELIVERY
     Route: 058
     Dates: start: 20200113
  2. ALBUTEROL INHALER [Concomitant]
     Active Substance: ALBUTEROL
     Indication: ASTHMA
     Dates: start: 201902
  3. PRENATAL VITAMIN [Concomitant]
     Active Substance: VITAMINS
     Indication: PREGNANCY
     Dosage: 27?0.8 MG DAILY
     Dates: start: 201911, end: 20200402
  4. METFORMIN [Concomitant]
     Active Substance: METFORMIN HYDROCHLORIDE
     Indication: GLUCOSE TOLERANCE IMPAIRED
     Dates: start: 20200113, end: 20200402

REACTIONS (4)
  - Amniotic cavity infection [Recovered/Resolved]
  - Product dose omission issue [Unknown]
  - Preterm premature rupture of membranes [Recovered/Resolved]
  - Premature delivery [Recovered/Resolved]

NARRATIVE: CASE EVENT DATE: 2020
